FAERS Safety Report 18471947 (Version 1)
Quarter: 2020Q4

REPORT INFORMATION
  Report Type: Spontaneous
  Country: US (occurrence: US)
  Receive Date: 20201105
  Receipt Date: 20201105
  Transmission Date: 20210114
  Serious: No
  Sender: FDA-Public Use
  Company Number: US-JNJFOC-20201101114

PATIENT
  Age: 2 Year
  Sex: Female
  Weight: 18.16 kg

DRUGS (1)
  1. MOTRIN INFANTS [Suspect]
     Active Substance: IBUPROFEN
     Indication: PRODUCT USED FOR UNKNOWN INDICATION
     Dosage: GAVE 2 OF 1.8ML
     Route: 065

REACTIONS (1)
  - Product administered to patient of inappropriate age [Unknown]
